FAERS Safety Report 8822534 (Version 3)
Quarter: 2013Q3

REPORT INFORMATION
  Report Type: Spontaneous
  Country: US (occurrence: US)
  Receive Date: 20121003
  Receipt Date: 20130709
  Transmission Date: 20140515
  Serious: No
  Sender: FDA-Public Use
  Company Number: US-PFIZER INC-2012242588

PATIENT
  Sex: Female

DRUGS (2)
  1. EFFEXOR XR [Suspect]
     Indication: DEPRESSION
     Dosage: 150 MG, 1X/DAY
     Route: 048
  2. PREMPRO [Suspect]
     Dosage: ESTROGENS CONJUGATED 0.625MG/MEDROXYPROGESTERONE ACETATE 2.5MG, 1X/DAY
     Route: 048
     Dates: start: 1996

REACTIONS (4)
  - Nervousness [Unknown]
  - Anxiety [Unknown]
  - Feeling hot [Recovered/Resolved]
  - Hyperhidrosis [Recovered/Resolved]
